FAERS Safety Report 8947944 (Version 1)
Quarter: 2012Q4

REPORT INFORMATION
  Report Type: Spontaneous
  Country: US (occurrence: None)
  Receive Date: 20121127
  Receipt Date: 20121127
  Transmission Date: 20130627
  Serious: Yes (Hospitalization)
  Sender: FDA-Public Use
  Company Number: VAL_01004_2012

PATIENT
  Sex: Female

DRUGS (16)
  1. METOPROLOL [Suspect]
     Indication: PRODUCT USED FOR UNKNOWN INDICATION
     Dosage: (DF)
  2. SURESOMIDE [Concomitant]
  3. PANTOPRAZOLE [Concomitant]
  4. SPIRONOLACTIN [Concomitant]
  5. GABIPENTIN [Concomitant]
  6. PREVASTATIN [Concomitant]
  7. WARFARIN [Concomitant]
  8. VITAMIN D /00107901/ [Concomitant]
  9. BECHLOMETHASONE [Concomitant]
  10. ALBUTEROL /00139501/ [Concomitant]
  11. CALCITONIN [Concomitant]
  12. FISH OIL [Concomitant]
  13. MAGNESIUM [Concomitant]
  14. POTASSIUM [Concomitant]
  15. HYDROCODONE [Concomitant]
  16. DIOVAN [Concomitant]

REACTIONS (8)
  - Pneumonia [None]
  - Gastrointestinal necrosis [None]
  - Coronary artery bypass [None]
  - Pulmonary thrombosis [None]
  - Arthralgia [None]
  - Osteonecrosis [None]
  - Dyspnoea [None]
  - Diarrhoea [None]
